FAERS Safety Report 8809708 (Version 1)
Quarter: 2012Q4

REPORT INFORMATION
  Report Type: 
  Country: US (occurrence: US)
  Receive Date: 20120926
  Receipt Date: 20120926
  Transmission Date: 20130627
  Serious: Yes (Hospitalization, Other)
  Sender: FDA-Public Use
  Company Number: US-ROCHE-1125645

PATIENT
  Age: 69 Year
  Sex: Male

DRUGS (4)
  1. AVASTIN [Suspect]
     Indication: COLON CANCER
     Route: 065
     Dates: start: 20040806
  2. XELODA [Suspect]
     Indication: COLON CANCER
     Route: 065
     Dates: start: 20030923
  3. XELODA [Suspect]
     Route: 065
     Dates: start: 20040806
  4. OXALIPLATIN [Suspect]
     Indication: COLON CANCER
     Route: 065
     Dates: start: 20040806

REACTIONS (3)
  - Pulmonary embolism [Recovered/Resolved]
  - Metastasis [Unknown]
  - Pulmonary mass [Unknown]
